FAERS Safety Report 4476680-1 (Version None)
Quarter: 2004Q4

REPORT INFORMATION
  Report Type: 
  Country: None (occurrence: None)
  Receive Date: 20041015
  Receipt Date: 20041015
  Transmission Date: 20050328
  Serious: Yes (Hospitalization)
  Sender: FDA-Public Use
  Company Number: None

PATIENT
  Age: 79 Year
  Sex: Male
  Weight: 69.5 kg

DRUGS (10)
  1. DILTIAZEM [Suspect]
     Indication: ATRIAL FIBRILLATION
     Dosage: 120 MG-SA- QD ORAL
     Route: 048
  2. DILTIAZEM [Suspect]
     Indication: HYPERTENSION
     Dosage: 120 MG-SA- QD ORAL
     Route: 048
  3. ASPIRIN [Concomitant]
  4. DONEPAZIL [Concomitant]
  5. GOSERELIN [Concomitant]
  6. KETOCONAZOLE [Concomitant]
  7. MEMANTINE [Concomitant]
  8. OXYBUTYNIN [Concomitant]
  9. MULTI-VITAMIN [Concomitant]
  10. HYDROCORTISONE [Concomitant]

REACTIONS (3)
  - BRADYCARDIA [None]
  - DIZZINESS [None]
  - HYPERHIDROSIS [None]
